FAERS Safety Report 5896107-2 (Version None)
Quarter: 2008Q3

REPORT INFORMATION
  Report Type: 
  Country: None (occurrence: None)
  Receive Date: 20080924
  Receipt Date: 20070917
  Transmission Date: 20090109
  Serious: Yes (Other)
  Sender: FDA-Public Use
  Company Number: US-ASTRAZENECA-2007UW18331

PATIENT
  Age: 16791 Day
  Sex: Male

DRUGS (1)
  1. SEROQUEL [Suspect]
     Indication: SLEEP DISORDER
     Dosage: 100 TO 400 MG
     Route: 048
     Dates: start: 20051101, end: 20060430

REACTIONS (1)
  - PANCREATITIS ACUTE [None]
